FAERS Safety Report 15824035 (Version 2)
Quarter: 2019Q1

REPORT INFORMATION
  Report Type: Spontaneous
  Country: US (occurrence: US)
  Receive Date: 20190114
  Receipt Date: 20190207
  Transmission Date: 20190417
  Serious: No
  Sender: FDA-Public Use
  Company Number: US-PFIZER INC-2019016027

PATIENT
  Age: 79 Year
  Sex: Female

DRUGS (2)
  1. DOXYCYCLINE HYCLATE. [Suspect]
     Active Substance: DOXYCYCLINE HYCLATE
     Dosage: UNK
  2. AMOXICILLIN. [Suspect]
     Active Substance: AMOXICILLIN
     Dosage: UNK

REACTIONS (2)
  - Nausea [Unknown]
  - Drug hypersensitivity [Unknown]
